FAERS Safety Report 9322137 (Version 1)
Quarter: 2013Q2

REPORT INFORMATION
  Report Type: Spontaneous
  Country: JP (occurrence: JP)
  Receive Date: 20130531
  Receipt Date: 20130531
  Transmission Date: 20140414
  Serious: Yes (Other)
  Sender: FDA-Public Use
  Company Number: JP-JNJFOC-20130516834

PATIENT
  Sex: Male

DRUGS (2)
  1. NICORETTE PATCH 1 [Suspect]
     Route: 062
  2. NICORETTE PATCH 1 [Suspect]
     Indication: SMOKING CESSATION THERAPY
     Route: 062
     Dates: start: 201210

REACTIONS (5)
  - Nicotine dependence [Unknown]
  - Intentional drug misuse [Unknown]
  - Impaired work ability [Unknown]
  - Depressed mood [Not Recovered/Not Resolved]
  - Wrong technique in drug usage process [Unknown]
